FAERS Safety Report 16929943 (Version 1)
Quarter: 2019Q4

REPORT INFORMATION
  Report Type: Spontaneous
  Country: US (occurrence: US)
  Receive Date: 20191017
  Receipt Date: 20191017
  Transmission Date: 20200122
  Serious: Yes (Death)
  Sender: FDA-Public Use
  Company Number: US-FRESENIUS KABI-FK201911352

PATIENT
  Age: 53 Year
  Sex: Female

DRUGS (2)
  1. MICAFUNGIN (MANUFACTURER UNKOWN) [Suspect]
     Active Substance: MICAFUNGIN
     Indication: BRONCHOPULMONARY ASPERGILLOSIS
     Dosage: UNKNOWN
     Route: 065
  2. POSACONAZOLE [Suspect]
     Active Substance: POSACONAZOLE
     Indication: BRONCHOPULMONARY ASPERGILLOSIS
     Dosage: UNKNOWN
     Route: 042

REACTIONS (1)
  - Treatment failure [Fatal]
